FAERS Safety Report 8421618-5 (Version None)
Quarter: 2012Q2

REPORT INFORMATION
  Report Type: 
  Country: None (occurrence: None)
  Receive Date: 20120608
  Receipt Date: 20120604
  Transmission Date: 20120825
  Serious: Yes (Hospitalization, Disabling)
  Sender: FDA-Public Use
  Company Number: FR-PFIZER INC-2011050157

PATIENT
  Age: 69 Year
  Sex: Female

DRUGS (10)
  1. PROTELOS [Concomitant]
  2. CALCIUM CARBONATE [Concomitant]
     Dosage: UNK
  3. FOLIC ACID [Concomitant]
  4. PREDNISONE TAB [Concomitant]
  5. VITAMIN D [Concomitant]
  6. METHOTREXATE [Concomitant]
     Indication: RHEUMATOID ARTHRITIS
  7. OMEPRAZOLE [Concomitant]
  8. FELDENE [Suspect]
     Indication: RHEUMATOID ARTHRITIS
     Dosage: 20 MG, 1X/DAY
     Route: 048
  9. TOCILIZUMAB [Suspect]
     Indication: RHEUMATOID ARTHRITIS
     Dosage: 8 MG/KG, CYCLIC
     Route: 042
     Dates: start: 20100803, end: 20101126
  10. INDAPAMIDE [Concomitant]

REACTIONS (4)
  - INTESTINAL PERFORATION [None]
  - DIFFUSE LARGE B-CELL LYMPHOMA [None]
  - INFECTION [None]
  - EPSTEIN-BARR VIRAEMIA [None]
